FAERS Safety Report 7802538-3 (Version None)
Quarter: 2011Q4

REPORT INFORMATION
  Report Type: 
  Country: None (occurrence: None)
  Receive Date: 20111007
  Receipt Date: 20110930
  Transmission Date: 20120403
  Serious: Yes (Hospitalization)
  Sender: FDA-Public Use
  Company Number: PL-UCBSA-042557

PATIENT
  Age: 10 Year
  Sex: Male
  Weight: 32 kg

DRUGS (3)
  1. DEPAKENE [Concomitant]
     Indication: EPILEPSY
     Dosage: DAILY DOSE: 850 (DOSES: 350 AND 500, FREQUENCY 2/DAY)
     Route: 048
  2. KEPPRA [Suspect]
     Indication: EPILEPSY
     Route: 048
     Dates: start: 20110401, end: 20110801
  3. FRISIUM [Concomitant]
     Indication: EPILEPSY
     Dosage: DAILY DOSE: 10 (DOSE: 5 FREQUENCY 2/DAY)
     Route: 048

REACTIONS (2)
  - SKIN LESION [None]
  - SUPERINFECTION BACTERIAL [None]
